FAERS Safety Report 7128750-7 (Version None)
Quarter: 2010Q4

REPORT INFORMATION
  Report Type: 
  Country: None (occurrence: None)
  Receive Date: 20101130
  Receipt Date: 20101123
  Transmission Date: 20110411
  Serious: Yes (Hospitalization)
  Sender: FDA-Public Use
  Company Number: FR-BRISTOL-MYERS SQUIBB COMPANY-15405046

PATIENT
  Age: 50 Year
  Sex: Male

DRUGS (11)
  1. BRISTOPEN [Suspect]
     Dosage: 2ND COURSE:26OCT-30OCT2010
     Route: 048
     Dates: start: 20101008, end: 20101018
  2. ENDOXAN [Suspect]
     Dates: start: 20101007
  3. BLEOMYCINE BELLON [Suspect]
     Indication: LYMPHOMA
     Dosage: 15MG11OCT2010 DAY5
     Route: 042
     Dates: start: 20101007, end: 20101011
  4. ADRIBLASTINE [Suspect]
     Dosage: 65MGX2 ON DAY 1
     Dates: start: 20101007
  5. ELDISINE [Suspect]
     Dosage: ON DAY 5 IV ON 11OCT2010
     Route: 042
     Dates: start: 20101007
  6. METHOTREXATE [Suspect]
     Dosage: ON DAY 2
     Route: 037
     Dates: start: 20101008
  7. HYDROCORTISONE [Concomitant]
     Dosage: ON DAY 2
     Dates: start: 20101008
  8. POLARAMINE [Concomitant]
     Dosage: ON DAY 5
     Dates: start: 20101011
  9. CARDIOXANE [Concomitant]
     Dosage: 1300MG X 2 ON DAY 1
     Route: 042
     Dates: start: 20101007
  10. METHYLPREDNISOLONE [Concomitant]
     Dosage: 104MG:11OCT2010
     Dates: start: 20101007
  11. ZOPHREN [Concomitant]
     Dosage: 11OCT2010 ON DAY 5
     Dates: start: 20101007

REACTIONS (2)
  - PALMAR-PLANTAR ERYTHRODYSAESTHESIA SYNDROME [None]
  - SKIN EXFOLIATION [None]
